FAERS Safety Report 19085868 (Version 2)
Quarter: 2021Q2

REPORT INFORMATION
  Report Type: Spontaneous
  Country: JP (occurrence: JP)
  Receive Date: 20210402
  Receipt Date: 20210407
  Transmission Date: 20210717
  Serious: Yes (Death)
  Sender: FDA-Public Use
  Company Number: JP-ROCHE-2801849

PATIENT
  Age: 82 Year
  Sex: Female

DRUGS (2)
  1. TECENTRIQ [Suspect]
     Active Substance: ATEZOLIZUMAB
     Indication: HEPATOCELLULAR CARCINOMA
     Dosage: DATE OF MOST RECENT DOSE RECEIVED PRIOR TO THE EVENT ONSET: JAN/2021
     Route: 041
     Dates: start: 202101
  2. AVASTIN [Suspect]
     Active Substance: BEVACIZUMAB
     Indication: HEPATOCELLULAR CARCINOMA
     Dosage: DATE OF MOST RECENT DOSE RECEIVED PRIOR TO THE EVENT ONSET: JAN/2021
     Route: 041
     Dates: start: 202101

REACTIONS (1)
  - Malignant pleural effusion [Fatal]

NARRATIVE: CASE EVENT DATE: 2021
